FAERS Safety Report 24579507 (Version 1)
Quarter: 2024Q4

REPORT INFORMATION
  Report Type: Spontaneous
  Country: US (occurrence: US)
  Receive Date: 20241105
  Receipt Date: 20241105
  Transmission Date: 20250115
  Serious: No
  Sender: GLAXOSMITHKLINE
  Company Number: US-GSKCCFUS-Case-02128745_AE-117420

PATIENT
  Sex: Female

DRUGS (2)
  1. ANORO ELLIPTA [Interacting]
     Active Substance: UMECLIDINIUM BROMIDE\VILANTEROL TRIFENATATE
     Indication: Chronic obstructive pulmonary disease
     Dosage: UNK 62.5/25 MCG
  2. METOPROLOL SUCCINATE [Interacting]
     Active Substance: METOPROLOL SUCCINATE
     Indication: Product used for unknown indication
     Dosage: UNK

REACTIONS (2)
  - Labelled drug-drug interaction medication error [Not Recovered/Not Resolved]
  - Intercepted product prescribing error [Unknown]
